FAERS Safety Report 13275348 (Version 1)
Quarter: 2017Q1

REPORT INFORMATION
  Report Type: Spontaneous
  Country: US (occurrence: US)
  Receive Date: 20170228
  Receipt Date: 20170228
  Transmission Date: 20170428
  Serious: No
  Sender: FDA-Public Use
  Company Number: US-AMGEN-USASP2017026511

PATIENT
  Sex: Female

DRUGS (1)
  1. ENBREL [Suspect]
     Active Substance: ETANERCEPT
     Indication: RHEUMATOID ARTHRITIS
     Dosage: 50 MG, QWK EVERY WEDNESDAY
     Route: 058
     Dates: start: 201701

REACTIONS (2)
  - Sluggishness [Unknown]
  - Fatigue [Unknown]

NARRATIVE: CASE EVENT DATE: 2017
